FAERS Safety Report 11747652 (Version 2)
Quarter: 2016Q3

REPORT INFORMATION
  Report Type: Report from Study
  Country: DE (occurrence: DE)
  Receive Date: 20151117
  Receipt Date: 20160706
  Transmission Date: 20161109
  Serious: Yes (Death)
  Sender: FDA-Public Use
  Company Number: DE-SYMPLMED PHARMACEUTICALS-2015SYMPLMED000080

PATIENT

DRUGS (4)
  1. XARELTO [Concomitant]
     Active Substance: RIVAROXABAN
     Indication: ATRIAL FIBRILLATION
     Dosage: 15 MG, QD
     Dates: start: 20140829, end: 20151107
  2. VIACORAM [Suspect]
     Active Substance: AMLODIPINE BESYLATE\PERINDOPRIL ARGININE
     Indication: HYPERTENSION
     Dosage: 1 (3.5MG/ 2.5MG) TABLET, QD
     Route: 048
     Dates: start: 20151029, end: 20151105
  3. FLECAINIDE ACETATE. [Concomitant]
     Active Substance: FLECAINIDE ACETATE
     Indication: ATRIAL FIBRILLATION
     Dosage: 100 MG, QD
     Dates: start: 20100715, end: 20151107
  4. VIACORAM [Suspect]
     Active Substance: AMLODIPINE BESYLATE\PERINDOPRIL ARGININE
     Dosage: 1 (7MG/ 5MG) TABLET, QD
     Route: 048
     Dates: start: 20151105, end: 20151107

REACTIONS (1)
  - Hypertensive crisis [Fatal]

NARRATIVE: CASE EVENT DATE: 20151105
